FAERS Safety Report 13988380 (Version 1)
Quarter: 2017Q3

REPORT INFORMATION
  Report Type: Spontaneous
  Country: KH (occurrence: KH)
  Receive Date: 20170919
  Receipt Date: 20170919
  Transmission Date: 20171128
  Serious: Yes (Life-Threatening, Other)
  Sender: FDA-Public Use
  Company Number: KH-009507513-1709KHM006556

PATIENT
  Age: 9 Month
  Sex: Male
  Weight: 9.5 kg

DRUGS (5)
  1. BETAMETHASONE. [Suspect]
     Active Substance: BETAMETHASONE
     Indication: BRONCHIOLITIS
     Dosage: 40 GTT, QD
     Dates: start: 20170903, end: 20170905
  2. BERODUAL [Concomitant]
     Active Substance: FENOTEROL HYDROBROMIDE\IPRATROPIUM BROMIDE
  3. DAFALGAN [Concomitant]
     Active Substance: ACETAMINOPHEN
  4. AERIUS [Concomitant]
     Active Substance: DESLORATADINE
     Route: 048
  5. OMNICEF [Concomitant]
     Active Substance: CEFDINIR

REACTIONS (6)
  - Abdominal discomfort [Recovered/Resolved]
  - Bronchiolitis [Unknown]
  - Prescribed overdose [Unknown]
  - Asthenia [Recovering/Resolving]
  - Haematochezia [Recovered/Resolved]
  - Fatigue [Recovering/Resolving]

NARRATIVE: CASE EVENT DATE: 20170903
